FAERS Safety Report 16917676 (Version 1)
Quarter: 2019Q4

REPORT INFORMATION
  Report Type: Spontaneous
  Country: US (occurrence: US)
  Receive Date: 20191015
  Receipt Date: 20191015
  Transmission Date: 20200122
  Serious: No
  Sender: FDA-Public Use
  Company Number: US-BEH-2019108107

PATIENT
  Age: 2 Year
  Sex: Female

DRUGS (7)
  1. FLOVENT HFA [Concomitant]
     Active Substance: FLUTICASONE PROPIONATE
  2. LUMIZYME [Concomitant]
     Active Substance: ALGLUCOSIDASE ALFA
  3. RITUXAN [Concomitant]
     Active Substance: RITUXIMAB
  4. ZINC OXIDE. [Concomitant]
     Active Substance: ZINC OXIDE
  5. BORTEZOMIB. [Concomitant]
     Active Substance: BORTEZOMIB
  6. HIZENTRA [Suspect]
     Active Substance: HUMAN IMMUNOGLOBULIN G
     Indication: HYPOGAMMAGLOBULINAEMIA
     Dosage: 2 GRAM, EVERY TEN DAYS
     Route: 058
     Dates: start: 20190828
  7. PROPANOLOL HYDROCHLORIDE [Concomitant]
     Active Substance: PROPRANOLOL HYDROCHLORIDE

REACTIONS (1)
  - Somnolence [Not Recovered/Not Resolved]
